FAERS Safety Report 6261954-4 (Version None)
Quarter: 2009Q3

REPORT INFORMATION
  Report Type: 
  Country: None (occurrence: None)
  Receive Date: 20090709
  Receipt Date: 20090304
  Transmission Date: 20100115
  Serious: Yes (Hospitalization, Disabling)
  Sender: FDA-Public Use
  Company Number: B0582845A

PATIENT
  Age: 81 Year
  Sex: Male
  Weight: 80 kg

DRUGS (1)
  1. OMACOR [Suspect]
     Dosage: 1000MG PER DAY
     Route: 048
     Dates: start: 20050824, end: 20050101

REACTIONS (5)
  - CEREBRAL INFARCTION [None]
  - DYSPHAGIA [None]
  - HEMIPARESIS [None]
  - PNEUMONIA ASPIRATION [None]
  - SPEECH DISORDER [None]
